FAERS Safety Report 9164016 (Version 1)
Quarter: 2012Q4

REPORT INFORMATION
  Report Type: 
  Country: US (occurrence: US)
  Receive Date: 20121130
  Receipt Date: 20121130
  Transmission Date: 20130627
  Serious: Yes (Other)
  Sender: FDA-Public Use
  Company Number: US-RB-047157-12

PATIENT
  Age: 84 Year
  Sex: Male

DRUGS (2)
  1. MUCINEX D (GUAIFENESIN) [Suspect]
     Indication: PRODUCT USED FOR UNKNOWN INDICATION
     Dosage: 2 tablets on 20-NOV-2012 and on 21-NOV-2012
     Route: 048
     Dates: start: 20121120
  2. MUCINEX D [Suspect]

REACTIONS (2)
  - Renal pain [Recovered/Resolved]
  - Dysuria [Not Recovered/Not Resolved]
